FAERS Safety Report 17045627 (Version 1)
Quarter: 2019Q4

REPORT INFORMATION
  Report Type: Spontaneous
  Country: GB (occurrence: GB)
  Receive Date: 20191118
  Receipt Date: 20191118
  Transmission Date: 20200122
  Serious: Yes (Disabling)
  Sender: FDA-Public Use
  Company Number: GB-TEIKOKU PHARMA USA-TPU2019-00800

PATIENT
  Age: 81 Year
  Sex: Female
  Weight: 69.6 kg

DRUGS (28)
  1. ALLIUM SATIVUM [Concomitant]
  2. PROPOFOL. [Concomitant]
     Active Substance: PROPOFOL
     Dates: start: 20160518
  3. IBUPROFEN. [Concomitant]
     Active Substance: IBUPROFEN
     Dates: start: 20160518, end: 20160523
  4. AMLODIPINE [Concomitant]
     Active Substance: AMLODIPINE BESYLATE
  5. GENTAMICIN. [Concomitant]
     Active Substance: GENTAMICIN
     Dates: start: 20160518, end: 20160518
  6. ONDANSETRON [Concomitant]
     Active Substance: ONDANSETRON
     Dates: start: 20160518
  7. PARACETAMOL [Concomitant]
     Active Substance: ACETAMINOPHEN
     Dates: start: 20160518
  8. TRANEXAMIC ACID. [Concomitant]
     Active Substance: TRANEXAMIC ACID
     Dates: start: 20160518
  9. NITRAZEPAM [Concomitant]
     Active Substance: NITRAZEPAM
  10. OXYCODONE HYDROCHLORIDE. [Concomitant]
     Active Substance: OXYCODONE HYDROCHLORIDE
     Dates: start: 20160518
  11. DALTEPARIN SODIUM [Concomitant]
     Active Substance: DALTEPARIN SODIUM
     Dates: start: 20160518
  12. OXYCODONE HYDROCHLORIDE. [Concomitant]
     Active Substance: OXYCODONE HYDROCHLORIDE
     Dates: start: 20160518, end: 20160519
  13. COLECALCIFEROL [Concomitant]
     Active Substance: CHOLECALCIFEROL
  14. LACTULOSE. [Concomitant]
     Active Substance: LACTULOSE
     Dates: start: 20160518
  15. ONDANSETRON [Concomitant]
     Active Substance: ONDANSETRON
     Dates: start: 20160518
  16. CYCLIZINE HYDROCHLORIDE [Concomitant]
     Active Substance: CYCLIZINE HYDROCHLORIDE
     Dates: start: 20160518
  17. DEXAMETHASONE. [Concomitant]
     Active Substance: DEXAMETHASONE
     Dates: start: 20160518
  18. CHLORHEXIDINE [Concomitant]
     Active Substance: CHLORHEXIDINE
     Dates: start: 20160518
  19. FLUCLOXACILLIN [Concomitant]
     Active Substance: FLUCLOXACILLIN
     Dates: start: 20160518, end: 20160519
  20. BUPIVACAINE. [Suspect]
     Active Substance: BUPIVACAINE
     Indication: HIP ARTHROPLASTY
     Route: 065
     Dates: start: 20160518
  21. DICLOFENAC [Concomitant]
     Active Substance: DICLOFENAC
     Dates: start: 20160518, end: 20160518
  22. CASSIA SENNA [Concomitant]
     Active Substance: HERBALS\SENNOSIDES
     Dates: start: 20160518
  23. LIDOCAINE. [Suspect]
     Active Substance: LIDOCAINE
     Indication: PRODUCT USED FOR UNKNOWN INDICATION
     Route: 065
  24. MAGNESIUM [Concomitant]
     Active Substance: MAGNESIUM
  25. OMEPRAZOLE. [Concomitant]
     Active Substance: OMEPRAZOLE
     Dates: start: 20160518, end: 20160523
  26. GABAPENTIN. [Concomitant]
     Active Substance: GABAPENTIN
     Dates: start: 20160518, end: 20160518
  27. SELENIUM [Concomitant]
     Active Substance: SELENIUM
  28. CYCLIZINE LACTATE [Concomitant]
     Active Substance: CYCLIZINE LACTATE
     Dates: start: 20160518

REACTIONS (7)
  - Weight bearing difficulty [Not Recovered/Not Resolved]
  - Pleuritic pain [Unknown]
  - Joint swelling [Unknown]
  - Back pain [Recovered/Resolved]
  - Limb discomfort [Not Recovered/Not Resolved]
  - Pain in extremity [Not Recovered/Not Resolved]
  - Joint noise [Not Recovered/Not Resolved]

NARRATIVE: CASE EVENT DATE: 201605
